FAERS Safety Report 6136115-X (Version None)
Quarter: 2009Q1

REPORT INFORMATION
  Report Type: 
  Country: None (occurrence: None)
  Receive Date: 20090330
  Receipt Date: 20090319
  Transmission Date: 20090719
  Serious: Yes (Other)
  Sender: FDA-Public Use
  Company Number: GB-AMGEN-US339473

PATIENT
  Sex: Female

DRUGS (5)
  1. ENBREL [Suspect]
     Indication: RHEUMATOID ARTHRITIS
     Route: 058
     Dates: start: 20070410
  2. ENBREL [Suspect]
     Dosage: UNKNOWN
  3. HUMIRA [Concomitant]
     Dosage: UNKNOWN
     Route: 065
     Dates: start: 20090311
  4. METHOTREXATE [Concomitant]
     Dosage: UNKNOWN
     Route: 065
  5. METHOTREXATE [Concomitant]

REACTIONS (1)
  - UVEITIS [None]
